FAERS Safety Report 8657948 (Version 2)
Quarter: 2012Q4

REPORT INFORMATION
  Report Type: 
  Country: JP (occurrence: JP)
  Receive Date: 20120710
  Receipt Date: 20121009
  Transmission Date: 20130627
  Serious: Yes (Hospitalization)
  Sender: FDA-Public Use
  Company Number: PHHY2012JP058315

PATIENT
  Age: 80 Year
  Sex: Female

DRUGS (4)
  1. RIVASTIGMINE [Suspect]
     Indication: DEMENTIA ALZHEIMER^S TYPE
     Dosage: 4.5 mg, daily
     Route: 062
     Dates: start: 20120626, end: 20120627
  2. GRAMALIL [Concomitant]
     Dosage: 2.5 mg, UNK
     Route: 048
     Dates: start: 201202, end: 20120705
  3. BENZALIN [Concomitant]
     Dosage: 5 mg, UNK
     Route: 048
     Dates: start: 201202, end: 20120705
  4. SEROQUEL [Concomitant]
     Dosage: 25 mg, UNK
     Route: 048
     Dates: start: 201202

REACTIONS (3)
  - Sedation [Recovered/Resolved]
  - Decreased activity [Unknown]
  - Aphagia [Unknown]
